FAERS Safety Report 7702785-5 (Version None)
Quarter: 2011Q3

REPORT INFORMATION
  Report Type: 
  Country: None (occurrence: None)
  Receive Date: 20110823
  Receipt Date: 20110811
  Transmission Date: 20111222
  Serious: Yes (Hospitalization, Other)
  Sender: FDA-Public Use
  Company Number: CA-JNJFOC-20110806922

PATIENT
  Weight: 2.55 kg

DRUGS (8)
  1. REMICADE [Suspect]
     Indication: MATERNAL EXPOSURE DURING PREGNANCY
     Route: 064
  2. CLONAZEPAM [Concomitant]
     Indication: MATERNAL EXPOSURE DURING PREGNANCY
     Route: 064
  3. WELLBUTRIN [Concomitant]
     Indication: MATERNAL EXPOSURE DURING PREGNANCY
     Route: 064
  4. SYNTHROID [Concomitant]
     Indication: MATERNAL EXPOSURE DURING PREGNANCY
     Route: 062
  5. MORPHINE [Concomitant]
     Indication: MATERNAL EXPOSURE DURING PREGNANCY
     Route: 064
  6. ADVIL LIQUI-GELS [Concomitant]
     Indication: MATERNAL EXPOSURE DURING PREGNANCY
     Route: 064
  7. EFFEXOR [Concomitant]
     Indication: MATERNAL EXPOSURE DURING PREGNANCY
     Route: 064
  8. TRAZODONE HCL [Concomitant]
     Indication: MATERNAL EXPOSURE DURING PREGNANCY
     Route: 064

REACTIONS (2)
  - PREMATURE BABY [None]
  - RESPIRATORY DISTRESS [None]
